FAERS Safety Report 4293081-X (Version None)
Quarter: 2004Q1

REPORT INFORMATION
  Report Type: 
  Country: None (occurrence: None)
  Receive Date: 20040212
  Receipt Date: 20020905
  Transmission Date: 20041129
  Serious: No
  Sender: FDA-Public Use
  Company Number: US-GLAXOSMITHKLINE-A0380024A

PATIENT
  Age: 31 Year
  Sex: Female
  Weight: 90 kg

DRUGS (2)
  1. PAXIL [Suspect]
     Indication: ANXIETY
     Route: 048
     Dates: start: 20020201, end: 20020701
  2. XANAX [Concomitant]
     Dosage: .25MG AS REQUIRED
     Dates: start: 20020501, end: 20020901

REACTIONS (11)
  - DIZZINESS [None]
  - DRUG INEFFECTIVE [None]
  - DRUG WITHDRAWAL SYNDROME [None]
  - EYELID FUNCTION DISORDER [None]
  - FEELING ABNORMAL [None]
  - HEADACHE [None]
  - HYPERSOMNIA [None]
  - LOOSE STOOLS [None]
  - TINNITUS [None]
  - TREMOR [None]
  - WEIGHT INCREASED [None]
